FAERS Safety Report 20552771 (Version 1)
Quarter: 2022Q1

REPORT INFORMATION
  Report Type: Spontaneous
  Country: US (occurrence: None)
  Receive Date: 20220303
  Receipt Date: 20220303
  Transmission Date: 20220423
  Serious: Yes (Death, Hospitalization)
  Sender: FDA-Public Use
  Company Number: None

PATIENT
  Age: 4 Year
  Sex: Male
  Weight: 14.1 kg

DRUGS (3)
  1. EPIDIOLEX [Suspect]
     Active Substance: CANNABIDIOL
     Dosage: OTHER STRENGTH : 100MG/ML, 1.4ML;?FREQUENCY : TWICE A DAY;?OTHER ROUTE : GTUBE;?
     Route: 050
  2. BANZEL [Suspect]
     Active Substance: RUFINAMIDE
     Dosage: FREQUENCY : TWICE A DAY;?OTHER ROUTE : GTUBE;?
     Route: 050
  3. KEPPRA [Suspect]
     Active Substance: LEVETIRACETAM
     Dosage: ROUTE: 4.5 ML PER GTUBE

REACTIONS (14)
  - Nasopharyngitis [None]
  - Dyspnoea [None]
  - Oxygen saturation decreased [None]
  - Respiratory rate decreased [None]
  - Hypopnoea [None]
  - Pulseless electrical activity [None]
  - Cardiac arrest [None]
  - Abdominal rigidity [None]
  - Abdominal compartment syndrome [None]
  - Intestinal ischaemia [None]
  - Intestinal perforation [None]
  - Agonal respiration [None]
  - Haemodynamic instability [None]
  - Hypotension [None]

NARRATIVE: CASE EVENT DATE: 20220302
